FAERS Safety Report 19126577 (Version 2)
Quarter: 2021Q2

REPORT INFORMATION
  Report Type: Spontaneous
  Country: GB (occurrence: GB)
  Receive Date: 20210412
  Receipt Date: 20210420
  Transmission Date: 20210717
  Serious: Yes (Hospitalization, Other)
  Sender: FDA-Public Use
  Company Number: GB-SA-2018SA125334

PATIENT
  Age: 46 Year
  Sex: Female

DRUGS (40)
  1. DOCETAXEL. [Suspect]
     Active Substance: DOCETAXEL
     Indication: BREAST CANCER METASTATIC
     Dosage: 120 MG, Q3W
     Route: 042
     Dates: start: 20150512, end: 20150512
  2. DENOSUMAB [Concomitant]
     Active Substance: DENOSUMAB
     Dosage: 120 MG, QM
     Route: 058
     Dates: start: 20150623, end: 20170508
  3. CALCEOS [Concomitant]
     Active Substance: CALCIUM CARBONATE\CHOLECALCIFEROL
     Dosage: UNK UNK,QD
     Route: 048
     Dates: start: 20150713, end: 20150824
  4. OMEPRAZOLE. [Concomitant]
     Active Substance: OMEPRAZOLE
     Indication: GASTRITIS
     Dosage: 20 MG, QD
     Route: 048
     Dates: start: 20150622, end: 20150713
  5. PARACETAMOL [Concomitant]
     Active Substance: ACETAMINOPHEN
     Dosage: 1 G
     Route: 048
     Dates: start: 20150420, end: 20180217
  6. E45 [Concomitant]
     Active Substance: LANOLIN\LIGHT MINERAL OIL\PARAFFIN
     Indication: PRURITUS
     Dosage: UNK, PRN (1 TABLESPOON)
     Route: 061
     Dates: start: 20150515
  7. ALGINIC ACID [Concomitant]
     Active Substance: ALGINIC ACID
  8. BRUFEN [IBUPROFEN] [Concomitant]
     Active Substance: IBUPROFEN
     Indication: ARTHRALGIA
     Dosage: 200 MG, BID
     Route: 048
     Dates: start: 20150420, end: 20150426
  9. IBUPROFEN. [Concomitant]
     Active Substance: IBUPROFEN
     Indication: SPINAL PAIN
     Dosage: 400 MG
     Route: 048
     Dates: start: 20161229
  10. DOCETAXEL. [Suspect]
     Active Substance: DOCETAXEL
     Dosage: 120 MG, Q3W
     Route: 042
     Dates: start: 20150804, end: 20150804
  11. LOPERAMIDE [Concomitant]
     Active Substance: LOPERAMIDE
     Indication: DIARRHOEA
     Dosage: 2 MG, PRN
     Route: 048
     Dates: start: 20150516, end: 20150516
  12. DENOSUMAB [Concomitant]
     Active Substance: DENOSUMAB
     Dosage: 120 MG, BID
     Route: 048
     Dates: start: 20180115
  13. CODEINE [Concomitant]
     Active Substance: CODEINE
     Indication: ARTHRALGIA
     Dosage: 30 MG
     Route: 048
     Dates: start: 20151221, end: 20160425
  14. NAPROXEN. [Concomitant]
     Active Substance: NAPROXEN
     Indication: INFLUENZA
     Dosage: 500 MG, BID
     Route: 048
     Dates: start: 20180218, end: 20180220
  15. RANITIDINE. [Concomitant]
     Active Substance: RANITIDINE
     Indication: GASTROOESOPHAGEAL REFLUX DISEASE
     Dosage: 150 MG, BID
     Route: 048
     Dates: start: 20150421
  16. PERTUZUMAB. [Suspect]
     Active Substance: PERTUZUMAB
     Indication: HER2 POSITIVE BREAST CANCER
     Dosage: 420 MG, Q3W
     Route: 042
     Dates: start: 20150420
  17. LAXIDO [Concomitant]
     Active Substance: POLYETHYLENE GLYCOL 3350\POTASSIUM CHLORIDE\SODIUM BICARBONATE\SODIUM CHLORIDE
     Indication: INFLUENZA
     Dosage: 1 DF, BID (1 SACHET)
     Route: 048
     Dates: start: 20180219, end: 20180220
  18. DOMPERIDONE [Concomitant]
     Active Substance: DOMPERIDONE
     Indication: NAUSEA
     Dosage: 10 MG, Q3D
     Route: 048
     Dates: start: 20150420, end: 20150427
  19. HYDROCORTISONE. [Concomitant]
     Active Substance: HYDROCORTISONE
     Indication: SPINAL PAIN
     Dosage: 400 MG
     Route: 048
     Dates: start: 20161229
  20. PARACETAMOL [Concomitant]
     Active Substance: ACETAMINOPHEN
     Indication: ARTHRALGIA
     Dosage: 1 G, Q4D
     Route: 048
     Dates: start: 20150427, end: 20150505
  21. ZOPICLONE [Concomitant]
     Active Substance: ZOPICLONE
     Indication: SLEEP DISORDER
     Dosage: 3.75 MG
     Route: 048
     Dates: start: 20151019
  22. TRASTUZUMAB. [Suspect]
     Active Substance: TRASTUZUMAB
     Indication: BREAST CANCER METASTATIC
     Dosage: 600 MG, Q3W
     Route: 041
     Dates: start: 20150420
  23. PERTUZUMAB. [Suspect]
     Active Substance: PERTUZUMAB
     Indication: BREAST CANCER METASTATIC
  24. ACICLOVIR [Concomitant]
     Active Substance: ACYCLOVIR
     Indication: GENITAL HERPES
     Dosage: 200 MG, QID
     Route: 048
     Dates: start: 20170211, end: 20170218
  25. ACICLOVIR [Concomitant]
     Active Substance: ACYCLOVIR
     Dosage: 400 MG, QID
     Route: 048
     Dates: start: 20170211, end: 20170218
  26. ADCAL D3 [Concomitant]
     Active Substance: CALCIUM CARBONATE\CHOLECALCIFEROL
     Dosage: 2 DF, QD
     Route: 048
     Dates: start: 20150623, end: 20150625
  27. AVEENO [Concomitant]
     Active Substance: DIMETHICONE\HOMOSALATE\OCTINOXATE\OCTISALATE\TITANIUM DIOXIDE
     Indication: ECZEMA
     Dosage: UNK
     Route: 061
     Dates: start: 20190114
  28. PARACETAMOL [Concomitant]
     Active Substance: ACETAMINOPHEN
     Indication: INFLUENZA
     Dosage: 1 G, Q4D
     Route: 048
     Dates: start: 20180218, end: 20180220
  29. DOCETAXEL. [Suspect]
     Active Substance: DOCETAXEL
     Indication: HER2 POSITIVE BREAST CANCER
     Dosage: 150 MG, Q3W
     Route: 042
     Dates: start: 20150421, end: 20150421
  30. TRASTUZUMAB. [Suspect]
     Active Substance: TRASTUZUMAB
     Indication: HER2 POSITIVE BREAST CANCER
  31. ENOXAPARIN [Concomitant]
     Active Substance: ENOXAPARIN
     Indication: INFLUENZA
     Dosage: 40 MG, QD
     Route: 058
     Dates: start: 20180219, end: 20180220
  32. AMOXIL [Concomitant]
     Active Substance: AMOXICILLIN
     Indication: LOWER RESPIRATORY TRACT INFECTION
     Dosage: 500 MG, QD
     Route: 048
     Dates: start: 20171227, end: 20180102
  33. MEGACE [Concomitant]
     Active Substance: MEGESTROL ACETATE
     Indication: MENOPAUSAL SYMPTOMS
     Dosage: 80 MG, QOD
     Route: 048
     Dates: start: 20150601
  34. HYDROCORTISONE. [Concomitant]
     Active Substance: HYDROCORTISONE
     Indication: ECZEMA
     Dosage: 1 % CREAM
     Route: 065
  35. NORMAL SALINE [Concomitant]
     Active Substance: SODIUM CHLORIDE
     Indication: ABDOMINAL PAIN
     Dosage: 1000 ML, PRN
     Route: 042
     Dates: start: 20160125, end: 20160125
  36. CO AMOXICLAV [AMOXICILLIN SODIUM;CLAVULANATE POTASSIUM] [Concomitant]
     Indication: INFLUENZA
     Dosage: 625 MG, Q3D
     Route: 048
     Dates: start: 20180220, end: 20180225
  37. TAMIFLU [Concomitant]
     Active Substance: OSELTAMIVIR PHOSPHATE
     Indication: INFLUENZA
     Dosage: 75 MG, QD
     Route: 048
     Dates: start: 20180219, end: 20180226
  38. SENNA [SENNA ALEXANDRINA] [Concomitant]
     Active Substance: SENNA LEAF
     Indication: INFLUENZA
     Dosage: 1 DF, QD (1 SACHET)
     Route: 048
     Dates: start: 20180219, end: 20180220
  39. CODEINE PHOSPHATE [Concomitant]
     Active Substance: CODEINE PHOSPHATE
     Indication: ARTHRALGIA
     Dosage: 30 MG
     Route: 048
     Dates: start: 20160816
  40. NAPROXEN. [Concomitant]
     Active Substance: NAPROXEN
     Indication: ARTHRALGIA
     Dosage: 250 MG
     Route: 048
     Dates: start: 2015, end: 20160314

REACTIONS (20)
  - Night sweats [Not Recovered/Not Resolved]
  - Ovarian cyst [Recovered/Resolved]
  - Abdominal pain [Recovered/Resolved]
  - Sleep disorder [Unknown]
  - Constipation [Recovered/Resolved]
  - Dysgeusia [Recovered/Resolved]
  - Headache [Recovered/Resolved]
  - Decreased appetite [Recovered/Resolved]
  - Night sweats [Not Recovered/Not Resolved]
  - Arthralgia [Not Recovered/Not Resolved]
  - Gastrooesophageal reflux disease [Recovered/Resolved]
  - Epistaxis [Not Recovered/Not Resolved]
  - Epistaxis [Recovered/Resolved]
  - Hypoaesthesia oral [Recovered/Resolved]
  - Lethargy [Recovered/Resolved]
  - Nausea [Recovered/Resolved]
  - Glossodynia [Unknown]
  - Gastritis [Recovered/Resolved]
  - Mood swings [Recovered/Resolved]
  - Neutropenic sepsis [Recovered/Resolved]

NARRATIVE: CASE EVENT DATE: 20150420
